FAERS Safety Report 5932995-9 (Version None)
Quarter: 2008Q4

REPORT INFORMATION
  Report Type: 
  Country: None (occurrence: None)
  Receive Date: 20081028
  Receipt Date: 20081023
  Transmission Date: 20090506
  Serious: Yes (Death, Life-Threatening, Hospitalization)
  Sender: FDA-Public Use
  Company Number: AU-BRISTOL-MYERS SQUIBB COMPANY-14351688

PATIENT
  Age: 57 Year
  Sex: Male
  Weight: 57 kg

DRUGS (6)
  1. CARBOPLATIN [Suspect]
     Indication: LUNG CANCER METASTATIC
     Route: 042
     Dates: start: 20080911, end: 20080911
  2. DOCETAXEL [Suspect]
     Indication: LUNG CANCER METASTATIC
     Route: 042
     Dates: start: 20080911, end: 20080911
  3. TEGRETOL [Concomitant]
     Indication: EPILEPSY
  4. ONDANSETRON [Concomitant]
     Indication: NAUSEA
     Dates: start: 20080918
  5. DILAUDID [Concomitant]
     Dates: start: 20080918
  6. ORDINE [Concomitant]

REACTIONS (5)
  - ARRHYTHMIA [None]
  - CARDIAC ARREST [None]
  - PANCYTOPENIA [None]
  - PNEUMONIA [None]
  - SEPTIC SHOCK [None]
